FAERS Safety Report 7020424-6 (Version None)
Quarter: 2010Q3

REPORT INFORMATION
  Report Type: 
  Country: None (occurrence: None)
  Receive Date: 20100929
  Receipt Date: 20100920
  Transmission Date: 20110219
  Serious: Yes (Other)
  Sender: FDA-Public Use
  Company Number: AL-ASTRAZENECA-2010SE44351

PATIENT
  Age: 78 Year
  Sex: Male
  Weight: 62 kg

DRUGS (1)
  1. BUPIVACAINE HCL [Suspect]
     Indication: NERVE BLOCK
     Dosage: REPEATED 5 ML INJECTION ( TOTAL 40 ML, 100 MG)
     Route: 053

REACTIONS (7)
  - ACCOMMODATION DISORDER [None]
  - AGITATION [None]
  - BRADYCARDIA [None]
  - HYPOTENSION [None]
  - MUSCLE TWITCHING [None]
  - OXYGEN SATURATION DECREASED [None]
  - PARAESTHESIA ORAL [None]
